FAERS Safety Report 14812645 (Version 2)
Quarter: 2018Q4

REPORT INFORMATION
  Report Type: Spontaneous
  Country: US (occurrence: US)
  Receive Date: 20180425
  Receipt Date: 20181029
  Transmission Date: 20190204
  Serious: No
  Sender: FDA-Public Use
  Company Number: US-GLAXOSMITHKLINE-US2018071842

PATIENT
  Age: 62 Year
  Sex: Male
  Weight: 108.39 kg

DRUGS (1)
  1. TRELEGY ELLIPTA [Suspect]
     Active Substance: FLUTICASONE FUROATE\UMECLIDINIUM BROMIDE\VILANTEROL TRIFENATATE
     Indication: CHRONIC OBSTRUCTIVE PULMONARY DISEASE
     Dosage: 1 PUFF(S), QD
     Route: 055
     Dates: start: 20180330, end: 20180417

REACTIONS (4)
  - Productive cough [Unknown]
  - Candida infection [Unknown]
  - Oral discomfort [Unknown]
  - Oral pain [Recovering/Resolving]

NARRATIVE: CASE EVENT DATE: 201804
